FAERS Safety Report 15469148 (Version 1)
Quarter: 2018Q4

REPORT INFORMATION
  Report Type: Spontaneous
  Country: US (occurrence: US)
  Receive Date: 20181001
  Receipt Date: 20181001
  Transmission Date: 20190205
  Serious: No
  Sender: FDA-Public Use
  Company Number: None

PATIENT
  Age: 28 Year
  Sex: Female

DRUGS (1)
  1. ORKAMBI [Suspect]
     Active Substance: IVACAFTOR\LUMACAFTOR
     Dates: end: 201809

REACTIONS (4)
  - Cystic fibrosis [None]
  - Nausea [None]
  - Condition aggravated [None]
  - Chest discomfort [None]

NARRATIVE: CASE EVENT DATE: 20180928
